FAERS Safety Report 8860137 (Version 3)
Quarter: 2012Q4

REPORT INFORMATION
  Report Type: 
  Country: JP (occurrence: JP)
  Receive Date: 20121025
  Receipt Date: 20121219
  Transmission Date: 20130627
  Serious: Yes (Hospitalization)
  Sender: FDA-Public Use
  Company Number: JP-PFIZER INC-2012261842

PATIENT
  Age: 60 Year
  Sex: Female
  Weight: 45.9 kg

DRUGS (8)
  1. SEIBULE [Suspect]
     Indication: DUMPING SYNDROME
     Dosage: 50 mg, 1x/day (in the morning)
     Route: 048
     Dates: start: 20110921, end: 20111023
  2. SEIBULE [Suspect]
     Indication: HYPOGLYCEMIA
     Dosage: 50 mg, 2x/day
     Route: 048
     Dates: start: 20111024, end: 201202
  3. SEIBULE [Suspect]
     Indication: POSTPRANDIAL HYPOGLYCEMIA
     Dosage: 50 mg, UNK
     Route: 048
     Dates: start: 201203, end: 20120514
  4. METHYCOBAL [Concomitant]
     Dosage: UNK
  5. GASCON [Concomitant]
     Dosage: UNK
  6. GASMOTIN [Concomitant]
     Dosage: UNK
  7. ALINAMIN [Concomitant]
     Dosage: UNK
  8. ROCALTROL [Concomitant]
     Dosage: UNK

REACTIONS (2)
  - Constipation [Unknown]
  - Intestinal obstruction [Unknown]
